FAERS Safety Report 15825298 (Version 1)
Quarter: 2019Q1

REPORT INFORMATION
  Report Type: Spontaneous
  Country: DE (occurrence: DE)
  Receive Date: 20190115
  Receipt Date: 20190115
  Transmission Date: 20190417
  Serious: Yes (Other)
  Sender: FDA-Public Use
  Company Number: DE-B.I. PHARMACEUTICALS,INC./RIDGEFIELD-2019-BI-001084

PATIENT
  Age: 36 Year
  Sex: Male

DRUGS (3)
  1. GILOTRIF [Suspect]
     Active Substance: AFATINIB
     Indication: NON-SMALL CELL LUNG CANCER
     Route: 065
     Dates: start: 201708
  2. GILOTRIF [Suspect]
     Active Substance: AFATINIB
     Indication: EGFR GENE MUTATION
  3. GILOTRIF [Suspect]
     Active Substance: AFATINIB
     Indication: ADENOCARCINOMA

REACTIONS (8)
  - Bone operation [Unknown]
  - Metastases to lymph nodes [Unknown]
  - Bone disorder [Unknown]
  - Pain [Unknown]
  - Metastases to central nervous system [Unknown]
  - Lung disorder [Unknown]
  - Cerebral disorder [Unknown]
  - Immobile [Unknown]

NARRATIVE: CASE EVENT DATE: 201709
